FAERS Safety Report 8296561-5 (Version None)
Quarter: 2012Q2

REPORT INFORMATION
  Report Type: 
  Country: None (occurrence: None)
  Receive Date: 20120418
  Receipt Date: 20120413
  Transmission Date: 20120825
  Serious: Yes (Hospitalization, Other)
  Sender: FDA-Public Use
  Company Number: JP-B.I. PHARMACEUTICALS,INC./RIDGEFIELD-2012-BP-07095NB

PATIENT
  Age: 75 Year
  Sex: Female
  Weight: 46.5 kg

DRUGS (2)
  1. PRADAXA [Suspect]
     Indication: ATRIAL FIBRILLATION
     Dosage: 220 MG
     Route: 048
     Dates: start: 20110901, end: 20120403
  2. LANSOPRAZOLE [Concomitant]
     Indication: GASTRITIS
     Dosage: 15 MG
     Route: 048
     Dates: start: 20120201

REACTIONS (3)
  - HAEMOGLOBIN DECREASED [None]
  - MELAENA [None]
  - CEREBRAL INFARCTION [None]
